FAERS Safety Report 7577935-4 (Version None)
Quarter: 2011Q2

REPORT INFORMATION
  Report Type: 
  Country: None (occurrence: None)
  Receive Date: 20110628
  Receipt Date: 20110624
  Transmission Date: 20111010
  Serious: Yes (Death, Hospitalization, Other)
  Sender: FDA-Public Use
  Company Number: PHHY2010AU73438

PATIENT
  Sex: Female

DRUGS (7)
  1. CLOZAPINE [Suspect]
     Dosage: 400 MG, NOCTE
     Dates: end: 20101102
  2. ABILIFY [Concomitant]
     Dosage: 10 MG, IN MORNING
     Route: 048
     Dates: end: 20101102
  3. PROVERA [Concomitant]
     Dosage: 150 MG, 3 MONTHLY
     Route: 030
  4. ATORVASTATIN [Concomitant]
     Dosage: 20 MG, IN MORNING
     Route: 048
     Dates: end: 20101102
  5. CLOZAPINE [Suspect]
     Dosage: 650 MG
     Route: 048
     Dates: start: 20080923
  6. CLOZAPINE [Suspect]
     Dosage: 400 MG, MANE
  7. OMEPRAZOLE [Concomitant]
     Dosage: 20 MG, IN MORNING

REACTIONS (9)
  - BRONCHITIS [None]
  - SCHIZOPHRENIA [None]
  - MULTI-VITAMIN DEFICIENCY [None]
  - DEATH [None]
  - OBESITY [None]
  - DYSPNOEA [None]
  - NEUTROPHIL COUNT ABNORMAL [None]
  - WHITE BLOOD CELL DISORDER [None]
  - INFLUENZA LIKE ILLNESS [None]
